FAERS Safety Report 14601858 (Version 1)
Quarter: 2018Q1

REPORT INFORMATION
  Report Type: Report from Study
  Country: None (occurrence: GB)
  Receive Date: 20180306
  Receipt Date: 20180306
  Transmission Date: 20180509
  Serious: Yes (Death)
  Sender: FDA-Public Use
  Company Number: GB-ABBVIE-18K-167-2277900-00

PATIENT
  Sex: Female

DRUGS (1)
  1. HUMIRA [Suspect]
     Active Substance: ADALIMUMAB
     Indication: RHEUMATOID ARTHRITIS
     Route: 058
     Dates: start: 20060320, end: 20070625

REACTIONS (4)
  - Hip arthroplasty [Fatal]
  - Cardiac failure congestive [Fatal]
  - Medical device site joint infection [Fatal]
  - Rheumatoid arthritis [Fatal]
